FAERS Safety Report 6283918-7 (Version None)
Quarter: 2009Q3

REPORT INFORMATION
  Report Type: 
  Country: None (occurrence: None)
  Receive Date: 20090722
  Receipt Date: 20090722
  Transmission Date: 20100115
  Serious: Yes (Hospitalization)
  Sender: FDA-Public Use
  Company Number: None

PATIENT
  Sex: Male
  Weight: 112 kg

DRUGS (2)
  1. DASATINIB 50 MG BRISTOL-MYERS SQUIBB [Suspect]
     Indication: BONE SARCOMA
     Dosage: 70 MG BID PO
     Route: 048
     Dates: start: 20090623, end: 20090717
  2. DASATINIB 20 MG BRISTOL-MYERS SQUIBB [Suspect]

REACTIONS (3)
  - FALL [None]
  - PAIN [None]
  - UPPER LIMB FRACTURE [None]
